FAERS Safety Report 5990993-3 (Version None)
Quarter: 2008Q4

REPORT INFORMATION
  Report Type: 
  Country: None (occurrence: None)
  Receive Date: 20081202
  Receipt Date: 20071016
  Transmission Date: 20090506
  Serious: Yes (Disabling, Other)
  Sender: FDA-Public Use
  Company Number: WAES 0710USA04208

PATIENT
  Age: 71 Year
  Sex: Female
  Weight: 46.7205 kg

DRUGS (1)
  1. FOSAMAX [Suspect]
     Indication: OSTEOPOROSIS
     Dosage: 70 MG/WKY/PO
     Route: 048
     Dates: start: 19970901, end: 20070901

REACTIONS (2)
  - OSTEOMYELITIS [None]
  - OSTEONECROSIS [None]
